FAERS Safety Report 7051576-X (Version None)
Quarter: 2010Q4

REPORT INFORMATION
  Report Type: 
  Country: None (occurrence: None)
  Receive Date: 20101018
  Receipt Date: 20101018
  Transmission Date: 20110411
  Serious: Yes (Other)
  Sender: FDA-Public Use
  Company Number: None

PATIENT
  Sex: Female
  Weight: 75 kg

DRUGS (3)
  1. CLARITHROMYCIN [Suspect]
     Indication: BACTERIAL INFECTION
     Dates: start: 20100928, end: 20101001
  2. CLARITHROMYCIN [Suspect]
     Indication: PHARYNGITIS STREPTOCOCCAL
     Dates: start: 20100928, end: 20101001
  3. PRISTIQ [Concomitant]

REACTIONS (5)
  - DIZZINESS [None]
  - HALLUCINATION [None]
  - NAUSEA [None]
  - PARAESTHESIA [None]
  - VOMITING [None]
